FAERS Safety Report 8450535-X (Version None)
Quarter: 2012Q2

REPORT INFORMATION
  Report Type: 
  Country: None (occurrence: None)
  Receive Date: 20120614
  Receipt Date: 20120614
  Transmission Date: 20120825
  Serious: Yes (Other)
  Sender: FDA-Public Use
  Company Number: None

PATIENT
  Sex: Female

DRUGS (2)
  1. MULTAQ [Suspect]
     Indication: TACHYCARDIA
  2. ANTI NAUSEA MEDICATION [Concomitant]

REACTIONS (2)
  - NAUSEA [None]
  - MALAISE [None]
